FAERS Safety Report 6311170-2 (Version None)
Quarter: 2009Q3

REPORT INFORMATION
  Report Type: 
  Country: None (occurrence: None)
  Receive Date: 20090817
  Receipt Date: 20090805
  Transmission Date: 20100115
  Serious: Yes (Hospitalization, Other)
  Sender: FDA-Public Use
  Company Number: CN-ROCHE-626126

PATIENT
  Age: 72 Year
  Sex: Male
  Weight: 55 kg

DRUGS (2)
  1. XELODA [Suspect]
     Route: 048
     Dates: start: 20090320, end: 20090601
  2. XELODA [Suspect]
     Route: 048
     Dates: start: 20090715, end: 20090721

REACTIONS (18)
  - CARBOHYDRATE ANTIGEN 125 INCREASED [None]
  - CARBOHYDRATE ANTIGEN 19-9 INCREASED [None]
  - DRUG INEFFECTIVE [None]
  - DRY SKIN [None]
  - HEARING IMPAIRED [None]
  - LOCALISED INFECTION [None]
  - LYMPHADENOPATHY [None]
  - METASTASES TO LIVER [None]
  - MOUTH ULCERATION [None]
  - NAUSEA [None]
  - PALMAR-PLANTAR ERYTHRODYSAESTHESIA SYNDROME [None]
  - PARAESTHESIA [None]
  - PRURITUS [None]
  - PYREXIA [None]
  - SKIN DISCOLOURATION [None]
  - URETHRAL ULCER [None]
  - URINE ODOUR ABNORMAL [None]
  - VISUAL ACUITY REDUCED [None]
